FAERS Safety Report 6243975-0 (Version None)
Quarter: 2009Q2

REPORT INFORMATION
  Report Type: 
  Country: None (occurrence: None)
  Receive Date: 20090623
  Receipt Date: 20090611
  Transmission Date: 20091009
  Serious: Yes (Hospitalization)
  Sender: FDA-Public Use
  Company Number: 8047708

PATIENT
  Age: 30 Year
  Sex: Male
  Weight: 95 kg

DRUGS (7)
  1. KEPPRA [Suspect]
     Indication: CONVULSION
     Dosage: 1500 MG 2/D IV
     Route: 042
     Dates: start: 20090601
  2. KEPPRA [Suspect]
     Indication: CONVULSION
     Dosage: 2000 MG IV
     Route: 042
     Dates: start: 20090601
  3. DECADRON [Concomitant]
  4. VALIUM [Concomitant]
  5. MAXIPIME [Concomitant]
  6. LEVAQUIN [Concomitant]
  7. FLAGYL [Concomitant]

REACTIONS (2)
  - CONVULSION [None]
  - INCORRECT DOSE ADMINISTERED [None]
